FAERS Safety Report 9787500 (Version 1)
Quarter: 2013Q4

REPORT INFORMATION
  Report Type: Spontaneous
  Country: US (occurrence: US)
  Receive Date: 20131230
  Receipt Date: 20131230
  Transmission Date: 20140711
  Serious: Yes (Other)
  Sender: FDA-Public Use
  Company Number: US-BRISTOL-MYERS SQUIBB COMPANY-19929991

PATIENT
  Sex: Male

DRUGS (1)
  1. ABILIFY [Suspect]
     Dosage: NO OF DOSES- 3 OR 4 TIMES
     Route: 048

REACTIONS (4)
  - Hallucination [Unknown]
  - Nervousness [Unknown]
  - Gastric disorder [Unknown]
  - Vomiting [Unknown]
